FAERS Safety Report 17401285 (Version 1)
Quarter: 2020Q1

REPORT INFORMATION
  Report Type: Spontaneous
  Country: PT (occurrence: PT)
  Receive Date: 20200211
  Receipt Date: 20200211
  Transmission Date: 20200409
  Serious: Yes (Other)
  Sender: FDA-Public Use
  Company Number: NVSC2020PT032491

PATIENT
  Age: 50 Year
  Sex: Female

DRUGS (2)
  1. BOTULINUM TOXIN [Concomitant]
     Active Substance: BOTULINUM TOXIN NOS
     Indication: PRODUCT USED FOR UNKNOWN INDICATION
     Dosage: UNK
     Route: 065
     Dates: start: 2019
  2. FINGOLIMOD. [Suspect]
     Active Substance: FINGOLIMOD
     Indication: MULTIPLE SCLEROSIS
     Dosage: UNK
     Route: 065

REACTIONS (8)
  - Pain [Unknown]
  - Open fracture [Not Recovered/Not Resolved]
  - Muscle strength abnormal [Unknown]
  - Bladder disorder [Unknown]
  - Secondary progressive multiple sclerosis [Unknown]
  - Pain in extremity [Recovered/Resolved]
  - Blood pressure decreased [Unknown]
  - Muscle spasms [Not Recovered/Not Resolved]
